FAERS Safety Report 8018225-5 (Version None)
Quarter: 2012Q1

REPORT INFORMATION
  Report Type: 
  Country: None (occurrence: None)
  Receive Date: 20120103
  Receipt Date: 20111223
  Transmission Date: 20120608
  Serious: Yes (Hospitalization)
  Sender: FDA-Public Use
  Company Number: JP-ELI_LILLY_AND_COMPANY-JP201111001047

PATIENT
  Age: 82 Year
  Sex: Male

DRUGS (2)
  1. ANALGESICS [Concomitant]
  2. FORTEO [Suspect]
     Dosage: UNK
     Route: 058
     Dates: start: 20111018, end: 20111101

REACTIONS (4)
  - DECREASED APPETITE [None]
  - BACK PAIN [None]
  - ARTHRALGIA [None]
  - WEIGHT DECREASED [None]
